FAERS Safety Report 4299289-1 (Version None)
Quarter: 2004Q1

REPORT INFORMATION
  Report Type: 
  Country: None (occurrence: None)
  Receive Date: 20040217
  Receipt Date: 20040209
  Transmission Date: 20041129
  Serious: Yes (Other)
  Sender: FDA-Public Use
  Company Number: US013349

PATIENT
  Age: 73 Year
  Sex: Female
  Weight: 58.6 kg

DRUGS (2)
  1. PROCRIT [Suspect]
     Indication: RENAL FAILURE CHRONIC
     Dosage: 40000 U, WEEKLY, SC
     Route: 058
     Dates: start: 20010830, end: 20020708
  2. DEXTRIFERRON [Concomitant]

REACTIONS (3)
  - ANTI-ERYTHROPOIETIN ANTIBODY POSITIVE [None]
  - DRUG EFFECT DECREASED [None]
  - NORMOCHROMIC NORMOCYTIC ANAEMIA [None]
